FAERS Safety Report 8662744 (Version 4)
Quarter: 2013Q1

REPORT INFORMATION
  Report Type: Spontaneous
  Country: BR (occurrence: BR)
  Receive Date: 20120712
  Receipt Date: 20130201
  Transmission Date: 20140127
  Serious: Yes (Other)
  Sender: FDA-Public Use
  Company Number: PHHY2012BR059210

PATIENT
  Sex: Female
  Weight: 81 kg

DRUGS (9)
  1. DIOVAN HCT [Suspect]
     Indication: HYPERTENSION
     Dosage: 1 DF (80/12.5 MG), A DAY
     Route: 048
  2. DIOVAN HCT [Suspect]
     Dosage: 1 DF (160/12.5 MG), A DAY
     Route: 048
  3. DIOVAN HCT [Suspect]
     Dosage: 1 DF (320/12.5 MG), A DAY
     Route: 048
  4. DIOVAN AMLO [Suspect]
     Dosage: 80MG OF VALSARTAN AND 5MG OF AMLODIPINE
  5. LIBIAN [Concomitant]
     Indication: HORMONE REPLACEMENT THERAPY
     Dosage: 2.5 MG, ONE TABLET A DAY
     Route: 048
  6. DURATESTON [Concomitant]
     Indication: HORMONE REPLACEMENT THERAPY
     Dosage: 1 DF, EVERY THREE MONTHS
     Route: 030
  7. CALTREN [Concomitant]
     Indication: HYPERTENSION
     Dosage: 10 MG, ONE TABLET A DAY (AT NIGHT)
     Route: 048
  8. SELOZOK [Concomitant]
     Indication: HYPERTENSION
     Dosage: 50 MG, ONE TABLET A DAY
     Route: 048
  9. AMLODIPINE [Concomitant]
     Indication: HYPERTENSION
     Dosage: 1 TABLET A DAY
     Route: 048

REACTIONS (14)
  - Hypothyroidism [Recovered/Resolved]
  - Hypertension [Not Recovered/Not Resolved]
  - Sensory disturbance [Recovered/Resolved]
  - Feeling abnormal [Recovered/Resolved]
  - Malaise [Recovered/Resolved]
  - Vertigo [Recovered/Resolved]
  - Choking [Recovered/Resolved]
  - Injection site pruritus [Recovered/Resolved]
  - Injection site mass [Recovered/Resolved]
  - Local swelling [Recovered/Resolved]
  - Pruritus [Recovered/Resolved]
  - Cough [Recovered/Resolved]
  - Nausea [Recovered/Resolved]
  - Headache [Recovered/Resolved]
